FAERS Safety Report 8401356-5 (Version None)
Quarter: 2012Q2

REPORT INFORMATION
  Report Type: 
  Country: None (occurrence: None)
  Receive Date: 20120530
  Receipt Date: 20120530
  Transmission Date: 20120825
  Serious: No
  Sender: FDA-Public Use
  Company Number: None

PATIENT
  Age: 68 Year
  Sex: Female

DRUGS (2)
  1. SENSORCAINE [Suspect]
     Indication: SPINAL ANAESTHESIA
     Dosage: SENSORCAINE INTRATHECAL
     Route: 037
     Dates: start: 20120323
  2. SENSORCAINE [Suspect]
     Indication: HIP ARTHROPLASTY
     Dosage: SENSORCAINE INTRATHECAL
     Route: 037
     Dates: start: 20120323

REACTIONS (1)
  - DRUG INEFFECTIVE [None]
